FAERS Safety Report 4587407-7 (Version None)
Quarter: 2005Q1

REPORT INFORMATION
  Report Type: 
  Country: None (occurrence: None)
  Receive Date: 20050218
  Receipt Date: 20050209
  Transmission Date: 20050727
  Serious: Yes (Hospitalization, Other)
  Sender: FDA-Public Use
  Company Number: US-JNJFOC-20040903344

PATIENT
  Sex: Female
  Weight: 58.06 kg

DRUGS (6)
  1. REMICADE [Suspect]
     Route: 042
  2. REMICADE [Suspect]
     Indication: RHEUMATOID ARTHRITIS
     Route: 042
  3. METHOTREXATE [Concomitant]
     Dosage: 6 TABLETS
  4. PREDNISONE [Concomitant]
  5. PLAQUENIL [Concomitant]
     Dosage: 2 TABLETS ONCE A DAY.
  6. FOLIC ACID [Concomitant]

REACTIONS (7)
  - AORTIC ANEURYSM [None]
  - ASTHENIA [None]
  - HISTOPLASMOSIS [None]
  - HYPERTENSION [None]
  - PELVIC FRACTURE [None]
  - THROMBOSIS [None]
  - URINARY TRACT INFECTION [None]
